FAERS Safety Report 4951599-8 (Version None)
Quarter: 2006Q1

REPORT INFORMATION
  Report Type: 
  Country: None (occurrence: None)
  Receive Date: 20060323
  Receipt Date: 20060309
  Transmission Date: 20060701
  Serious: Yes (Hospitalization)
  Sender: FDA-Public Use
  Company Number: 2006UW03974

PATIENT
  Sex: Female

DRUGS (5)
  1. IRESSA [Suspect]
     Indication: CERVIX CARCINOMA
     Route: 048
     Dates: start: 20060124, end: 20060212
  2. MS CONTIN [Concomitant]
  3. MSIR [Concomitant]
  4. ATIVAN [Concomitant]
  5. COUMADIN [Concomitant]

REACTIONS (3)
  - DEEP VEIN THROMBOSIS [None]
  - GASTROINTESTINAL HAEMORRHAGE [None]
  - HAEMOGLOBIN DECREASED [None]
